FAERS Safety Report 4838921-8 (Version None)
Quarter: 2005Q4

REPORT INFORMATION
  Report Type: 
  Country: None (occurrence: None)
  Receive Date: 20051129
  Receipt Date: 20051010
  Transmission Date: 20060501
  Serious: No
  Sender: FDA-Public Use
  Company Number: US-GLAXOSMITHKLINE-A0577683A

PATIENT
  Age: 35 Year
  Sex: Male

DRUGS (3)
  1. EPZICOM [Suspect]
     Indication: HIV INFECTION
     Dosage: 1TAB PER DAY
     Route: 048
  2. REYATAZ [Concomitant]
  3. KALETRA [Concomitant]

REACTIONS (5)
  - ANXIETY [None]
  - FEAR [None]
  - GAIT DISTURBANCE [None]
  - HEART RATE INCREASED [None]
  - MUSCULAR WEAKNESS [None]
